FAERS Safety Report 6195975-7 (Version None)
Quarter: 2009Q2

REPORT INFORMATION
  Report Type: 
  Country: None (occurrence: None)
  Receive Date: 20090520
  Receipt Date: 20090512
  Transmission Date: 20091009
  Serious: Yes (Other)
  Sender: FDA-Public Use
  Company Number: PHHY2009FR11725

PATIENT
  Sex: Female
  Weight: 58 kg

DRUGS (7)
  1. ZOMETA [Suspect]
     Indication: METASTASES TO LIVER
     Dosage: 4 MG, UNK
     Dates: start: 20090318
  2. ZOMETA [Suspect]
     Indication: METASTASES TO BONE
  3. ERBITUX [Suspect]
     Indication: METASTASES TO LIVER
     Dosage: 2 INFUSIONS PER MONTHS
  4. ERBITUX [Suspect]
     Indication: METASTASES TO BONE
  5. LEXOMIL [Concomitant]
  6. MEPRONIZINE [Concomitant]
  7. XELODA [Concomitant]

REACTIONS (15)
  - ANOXIA [None]
  - ARTHRALGIA [None]
  - ASTHENIA [None]
  - BONE PAIN [None]
  - C-REACTIVE PROTEIN INCREASED [None]
  - CHILLS [None]
  - CONJUNCTIVITIS [None]
  - DEPRESSION [None]
  - EYE PAIN [None]
  - FATIGUE [None]
  - INFLUENZA LIKE ILLNESS [None]
  - MYALGIA [None]
  - PYREXIA [None]
  - SOMNOLENCE [None]
  - UVEITIS [None]
